FAERS Safety Report 5697389-2 (Version None)
Quarter: 2008Q2

REPORT INFORMATION
  Report Type: 
  Country: None (occurrence: None)
  Receive Date: 20080407
  Receipt Date: 20080331
  Transmission Date: 20081010
  Serious: Yes (Hospitalization, Other)
  Sender: FDA-Public Use
  Company Number: PHFR2008GB00540

PATIENT
  Age: 25 Year
  Sex: Male

DRUGS (8)
  1. CARBAMAZEPINE [Suspect]
  2. KEPPRA [Concomitant]
     Indication: EPILEPSY
  3. LAMICTAL [Concomitant]
     Indication: EPILEPSY
  4. BISOPROLOL FUMARATE [Concomitant]
  5. SIMVASTATIN [Concomitant]
  6. ACETYLSALICYLIC ACID SRT [Concomitant]
  7. TRILEPTAL [Suspect]
     Dosage: 450MG/DAY
  8. ONDANSETRON [Concomitant]
     Indication: NAUSEA

REACTIONS (6)
  - AGEUSIA [None]
  - MALAISE [None]
  - MUSCULAR WEAKNESS [None]
  - NAUSEA [None]
  - NEUROSIS [None]
  - WEIGHT DECREASED [None]
